FAERS Safety Report 8851441 (Version 5)
Quarter: 2012Q4

REPORT INFORMATION
  Report Type: 
  Country: FI (occurrence: FI)
  Receive Date: 20121022
  Receipt Date: 20121219
  Transmission Date: 20130627
  Serious: Yes (Disabling, Other)
  Sender: FDA-Public Use
  Company Number: FI-AMGEN-FINSP2012066621

PATIENT
  Age: 65 Year
  Sex: Male

DRUGS (5)
  1. XGEVA [Suspect]
     Indication: RENAL CANCER METASTATIC
     Dosage: 120 mg, UNK
     Route: 058
     Dates: start: 20120420, end: 20120615
  2. ZOMETA [Suspect]
     Indication: RENAL CANCER METASTATIC
     Dosage: UNK mg, UNK
     Route: 042
     Dates: start: 20110916, end: 20120329
  3. OXYCONTIN [Concomitant]
     Indication: ANALGESIC THERAPY
     Dosage: 40 mg, UNK
     Route: 048
     Dates: start: 20120518
  4. VOTRIENT [Concomitant]
     Indication: RENAL CANCER METASTATIC
     Dosage: 800 mg, UNK
     Route: 048
     Dates: start: 20111118
  5. PRIMPERAN [Concomitant]
     Indication: PROPHYLAXIS OF NAUSEA AND VOMITING
     Dosage: 30 mg, UNK
     Route: 048
     Dates: start: 20120217

REACTIONS (1)
  - Osteonecrosis of jaw [Not Recovered/Not Resolved]
